FAERS Safety Report 5726268-7 (Version None)
Quarter: 2008Q2

REPORT INFORMATION
  Report Type: 
  Country: None (occurrence: None)
  Receive Date: 20080501
  Receipt Date: 20080501
  Transmission Date: 20081010
  Serious: Yes (Life-Threatening, Other)
  Sender: FDA-Public Use
  Company Number: None

PATIENT
  Sex: Female
  Weight: 41.7309 kg

DRUGS (1)
  1. DOXYCYCLINE [Suspect]
     Indication: PNEUMONIA
     Dosage: 1 TABLET UNKNOWN  ONCE
     Dates: start: 20070913, end: 20070913

REACTIONS (5)
  - AMNESIA [None]
  - BLOOD GLUCOSE DECREASED [None]
  - DYSARTHRIA [None]
  - UNEVALUABLE EVENT [None]
  - UNRESPONSIVE TO STIMULI [None]
